FAERS Safety Report 5454299-3 (Version None)
Quarter: 2007Q3

REPORT INFORMATION
  Report Type: 
  Country: None (occurrence: None)
  Receive Date: 20070917
  Receipt Date: 20070228
  Transmission Date: 20080115
  Serious: Yes (Hospitalization)
  Sender: FDA-Public Use
  Company Number: US-ASTRAZENECA-2006UW12156

PATIENT
  Age: 383 Month
  Sex: Female
  Weight: 72.7 kg

DRUGS (8)
  1. SEROQUEL [Suspect]
     Indication: DEPRESSION
     Route: 048
     Dates: start: 20030101, end: 20040101
  2. SEROQUEL [Suspect]
     Indication: ANXIETY
     Route: 048
     Dates: start: 20030101, end: 20040101
  3. ABILIFY [Concomitant]
  4. GEODON [Concomitant]
  5. RISPERDAL [Concomitant]
  6. LEXAPRO [Concomitant]
     Dates: start: 20010101
  7. NEURONTIN [Concomitant]
     Dates: start: 20010101
  8. ATIVAN [Concomitant]
     Dates: start: 20010101

REACTIONS (2)
  - DIABETES MELLITUS [None]
  - PANCREATITIS [None]
